FAERS Safety Report 6135963-X (Version None)
Quarter: 2009Q1

REPORT INFORMATION
  Report Type: 
  Country: None (occurrence: None)
  Receive Date: 20090329
  Receipt Date: 20080402
  Transmission Date: 20090719
  Serious: No
  Sender: FDA-Public Use
  Company Number: US-BAUSCH-2008BL001483

PATIENT
  Age: 57 Year
  Sex: Female

DRUGS (10)
  1. LOTEMAX [Suspect]
     Indication: KERATOCONJUNCTIVITIS SICCA
     Route: 047
     Dates: start: 20080324, end: 20080324
  2. LOTEMAX [Suspect]
     Route: 047
     Dates: start: 20080324, end: 20080324
  3. LOTEMAX [Suspect]
     Indication: OCULAR DISCOMFORT
     Route: 047
     Dates: start: 20080324, end: 20080324
  4. LOTEMAX [Suspect]
     Indication: EYELID EROSION
     Route: 047
     Dates: start: 20080324, end: 20080324
  5. LOTEMAX [Suspect]
     Route: 047
     Dates: start: 20080325, end: 20080325
  6. LOTEMAX [Suspect]
     Route: 047
     Dates: start: 20080325, end: 20080325
  7. LOTEMAX [Suspect]
     Route: 047
     Dates: start: 20080325, end: 20080325
  8. LOTEMAX [Suspect]
     Route: 047
     Dates: start: 20080325, end: 20080325
  9. CALCIUM [Concomitant]
     Indication: VITAMIN SUPPLEMENTATION
  10. VITAMIN E [Concomitant]
     Indication: VITAMIN SUPPLEMENTATION

REACTIONS (4)
  - CONDITION AGGRAVATED [None]
  - EYELID EROSION [None]
  - HEADACHE [None]
  - KERATOCONJUNCTIVITIS SICCA [None]
